FAERS Safety Report 23330744 (Version 1)
Quarter: 2023Q4

REPORT INFORMATION
  Report Type: Spontaneous
  Country: US (occurrence: US)
  Receive Date: 20231222
  Receipt Date: 20231222
  Transmission Date: 20240109
  Serious: Yes (Other)
  Sender: FDA-Public Use
  Company Number: US-SABAL THERAPEUTICS LLC-2023-ATH-000036

PATIENT

DRUGS (4)
  1. FENOFIBRIC ACID [Suspect]
     Active Substance: FENOFIBRIC ACID
     Indication: Familial partial lipodystrophy
     Route: 065
  2. NYSTATIN [Concomitant]
     Active Substance: NYSTATIN
     Indication: Familial partial lipodystrophy
     Route: 065
  3. OMEGA-3 FATTY ACIDS [Concomitant]
     Active Substance: OMEGA-3 FATTY ACIDS
     Indication: Familial partial lipodystrophy
     Route: 065
  4. NIACIN [Concomitant]
     Active Substance: NIACIN
     Indication: Familial partial lipodystrophy
     Route: 065

REACTIONS (3)
  - Pancreatitis [Unknown]
  - Blood triglycerides increased [Unknown]
  - Drug ineffective for unapproved indication [Unknown]
